FAERS Safety Report 11047794 (Version 1)
Quarter: 2015Q2

REPORT INFORMATION
  Report Type: Spontaneous
  Country: US (occurrence: US)
  Receive Date: 20150420
  Receipt Date: 20150420
  Transmission Date: 20150821
  Serious: Yes (Other)
  Sender: FDA-Public Use
  Company Number: US-RB PHARMACEUTICALS LIMITED-RB-078270-2015

PATIENT
  Age: 31 Year
  Sex: Female

DRUGS (3)
  1. SUBOXONE [Suspect]
     Active Substance: BUPRENORPHINE HYDROCHLORIDE\NALOXONE HYDROCHLORIDE
     Indication: DRUG DEPENDENCE
     Dosage: 8 MG, BID
     Route: 060
     Dates: start: 201502, end: 201502
  2. SUBOXONE [Suspect]
     Active Substance: BUPRENORPHINE HYDROCHLORIDE\NALOXONE HYDROCHLORIDE
     Dosage: 2 MG, TWICE DAILY
     Route: 060
     Dates: start: 201502, end: 20150407
  3. UNKNOWN ANTI-DEPRESSANT [Concomitant]
     Indication: DEPRESSION
     Dosage: UNK, DAILY
     Route: 065

REACTIONS (9)
  - Wrong technique in drug usage process [Recovered/Resolved]
  - Suicidal ideation [Recovered/Resolved]
  - Intentional underdose [Recovered/Resolved]
  - Drug prescribing error [Recovered/Resolved]
  - Feeling abnormal [Not Recovered/Not Resolved]
  - Vomiting [Not Recovered/Not Resolved]
  - Depression [Not Recovered/Not Resolved]
  - Nausea [Not Recovered/Not Resolved]
  - Malaise [Not Recovered/Not Resolved]

NARRATIVE: CASE EVENT DATE: 201502
